FAERS Safety Report 4693478-X (Version None)
Quarter: 2005Q2

REPORT INFORMATION
  Report Type: 
  Country: None (occurrence: None)
  Receive Date: 20050615
  Receipt Date: 20050604
  Transmission Date: 20051028
  Serious: Yes (Other)
  Sender: FDA-Public Use
  Company Number: 2005062815

PATIENT
  Age: 62 Year
  Sex: Female

DRUGS (9)
  1. CELEBREX [Suspect]
     Indication: PAIN
     Dosage: 200 MG (200 MG, 1 IN 1 D), ORAL
     Route: 048
     Dates: end: 20020101
  2. BEXTRA [Suspect]
     Indication: PAIN
     Dosage: 20 MG (20 MG, 1 IN 1 D)
     Dates: start: 20020101
  3. ZOLOFT [Suspect]
     Indication: DEPRESSION
     Dates: start: 20020101
  4. TAMOXIFEN CITRATE [Suspect]
     Indication: BREAST CANCER
     Dates: start: 20010101
  5. NEXIUM [Suspect]
     Indication: GASTROOESOPHAGEAL REFLUX DISEASE
     Dates: start: 19980101
  6. PEPCID [Suspect]
     Indication: GASTROOESOPHAGEAL REFLUX DISEASE
     Dates: start: 19980101
  7. VIOXX [Concomitant]
  8. TOPROL-XL [Concomitant]
  9. ZOCOR [Concomitant]

REACTIONS (10)
  - ANAEMIA [None]
  - BACK DISORDER [None]
  - BREAST CANCER FEMALE [None]
  - DRUG EFFECT DECREASED [None]
  - FALL [None]
  - GAIT DISTURBANCE [None]
  - GASTROOESOPHAGEAL REFLUX DISEASE [None]
  - JOINT SWELLING [None]
  - SPINAL OSTEOARTHRITIS [None]
  - TENDON INJURY [None]
